FAERS Safety Report 7216148-2 (Version None)
Quarter: 2011Q1

REPORT INFORMATION
  Report Type: 
  Country: None (occurrence: None)
  Receive Date: 20110107
  Receipt Date: 20101215
  Transmission Date: 20110831
  Serious: No
  Sender: FDA-Public Use
  Company Number: US-B.I. PHARMACEUTICALS,INC./RIDGEFIELD-2010-BP-14785BP

PATIENT
  Sex: Female

DRUGS (7)
  1. METOPROLOL TARTRATE [Concomitant]
     Indication: HYPERTENSION
  2. HYDROCHLOROTHIAZIDE [Concomitant]
  3. PRADAXA [Suspect]
     Indication: ATRIAL FIBRILLATION
     Dosage: 300 MG
     Route: 048
     Dates: start: 20101214
  4. FOLIC ACID [Concomitant]
  5. QUINAPRIL [Concomitant]
     Indication: HYPERTENSION
  6. LEVOTHYROXINE SODIUM [Concomitant]
     Indication: HYPOTHYROIDISM
  7. VITAMIN B-12 [Concomitant]

REACTIONS (2)
  - OROPHARYNGEAL PAIN [None]
  - PHARYNGEAL OEDEMA [None]
